FAERS Safety Report 16926228 (Version 3)
Quarter: 2020Q1

REPORT INFORMATION
  Report Type: Report from Study
  Country: PL (occurrence: PL)
  Receive Date: 20191016
  Receipt Date: 20200115
  Transmission Date: 20200409
  Serious: No
  Sender: FDA-Public Use
  Company Number: PL-EXELIXIS-XL18419024459

PATIENT
  Age: 70 Year
  Sex: Male
  Weight: 65.4 kg

DRUGS (26)
  1. XL184 [Suspect]
     Active Substance: CABOZANTINIB
     Dosage: 20 MG, QD
     Route: 048
  2. MICRODACYN [Concomitant]
  3. PARACETAMOL [Concomitant]
     Active Substance: ACETAMINOPHEN
  4. ATEZOLIZUMAB. [Suspect]
     Active Substance: ATEZOLIZUMAB
     Indication: HEPATOCELLULAR CARCINOMA
     Dosage: 1200 MG, Q3WEEKS
     Route: 042
     Dates: start: 20190731
  5. OXYDOLOR [Concomitant]
  6. CIPRONEX [Concomitant]
     Active Substance: CIPROFLOXACIN
  7. FOMUKAL [Concomitant]
  8. OMNIC [Concomitant]
     Active Substance: TAMSULOSIN HYDROCHLORIDE
  9. PYRALGIN [Concomitant]
  10. ARGOSULFAN [Concomitant]
  11. SKUDEXA [Concomitant]
     Active Substance: DEXKETOPROFEN\TRAMADOL
  12. LAPIXEN [Concomitant]
  13. CLEXANE [Concomitant]
     Active Substance: ENOXAPARIN SODIUM
  14. CLODERM [Concomitant]
     Active Substance: CLOCORTOLONE PIVALATE
  15. POLPIX [Concomitant]
  16. XL184 [Suspect]
     Active Substance: CABOZANTINIB
     Indication: HEPATOCELLULAR CARCINOMA
     Dosage: 40 MG, QD
     Route: 048
     Dates: start: 20190731
  17. ALLEVYN [Concomitant]
  18. ADVANTAN [Concomitant]
     Active Substance: METHYLPREDNISOLONE ACEPONATE
  19. LIGNOCAINE [Concomitant]
     Active Substance: LIDOCAINE HYDROCHLORIDE
  20. UREA. [Concomitant]
     Active Substance: UREA
  21. STOPERAN [Concomitant]
  22. VALSACOR [Concomitant]
     Active Substance: VALSARTAN
  23. METAFEN [Concomitant]
  24. LYRICA [Concomitant]
     Active Substance: PREGABALIN
  25. VESSEL DUE F [Concomitant]
     Active Substance: SULODEXIDE
  26. AMANITIX [Concomitant]

REACTIONS (1)
  - Hyperthyroidism [Recovered/Resolved]

NARRATIVE: CASE EVENT DATE: 20190918
